FAERS Safety Report 15785134 (Version 4)
Quarter: 2020Q3

REPORT INFORMATION
  Report Type: Spontaneous
  Country: US (occurrence: US)
  Receive Date: 20190103
  Receipt Date: 20200916
  Transmission Date: 20201102
  Serious: No
  Sender: FDA-Public Use
  Company Number: US-PFIZER INC-2019001481

PATIENT
  Age: 44 Year
  Sex: Female

DRUGS (5)
  1. XELJANZ XR [Suspect]
     Active Substance: TOFACITINIB CITRATE
     Dosage: 11 MG, 1X/DAY
     Route: 048
     Dates: start: 20180813
  2. XELJANZ XR [Suspect]
     Active Substance: TOFACITINIB CITRATE
     Dosage: 11 MG
     Dates: start: 20180814
  3. XELJANZ XR [Suspect]
     Active Substance: TOFACITINIB CITRATE
     Indication: RHEUMATOID ARTHRITIS
     Dosage: 11 MG
     Route: 048
     Dates: start: 20180213
  4. XELJANZ XR [Suspect]
     Active Substance: TOFACITINIB CITRATE
     Dosage: 11 MG, DAILY
     Route: 048
     Dates: start: 2019
  5. XELJANZ XR [Suspect]
     Active Substance: TOFACITINIB CITRATE
     Dosage: 11 MG
     Dates: start: 20181112

REACTIONS (20)
  - Nausea [Recovered/Resolved]
  - Rash pruritic [Unknown]
  - Depressed mood [Unknown]
  - Fibromyalgia [Unknown]
  - Blood cholesterol increased [Unknown]
  - Sleep disorder due to a general medical condition [Unknown]
  - Formication [Unknown]
  - Product dose omission issue [Unknown]
  - Contusion [Unknown]
  - Laboratory test abnormal [Unknown]
  - Fatigue [Unknown]
  - Psychiatric symptom [Unknown]
  - Pruritus [Recovered/Resolved]
  - Balance disorder [Recovered/Resolved]
  - Pain [Recovering/Resolving]
  - Depression [Unknown]
  - Rash [Not Recovered/Not Resolved]
  - Immune system disorder [Recovering/Resolving]
  - Condition aggravated [Unknown]
  - Tearfulness [Unknown]

NARRATIVE: CASE EVENT DATE: 20181224
